FAERS Safety Report 15387587 (Version 1)
Quarter: 2018Q3

REPORT INFORMATION
  Report Type: Report from Study
  Country: AR (occurrence: AR)
  Receive Date: 20180914
  Receipt Date: 20180914
  Transmission Date: 20181010
  Serious: Yes (Other)
  Sender: FDA-Public Use
  Company Number: PHHY2018AR092310

PATIENT
  Sex: Female

DRUGS (1)
  1. ENTRESTO [Suspect]
     Active Substance: SACUBITRIL\VALSARTAN
     Indication: CARDIAC FAILURE
     Dosage: 2 DF (100 MG), QD (STARTED 2 YEARS AGO)
     Route: 065

REACTIONS (2)
  - Inappropriate schedule of drug administration [Unknown]
  - Myocardial ischaemia [Not Recovered/Not Resolved]
